FAERS Safety Report 8889387 (Version 1)
Quarter: 2012Q4

REPORT INFORMATION
  Report Type: Spontaneous
  Country: US (occurrence: None)
  Receive Date: 20121102
  Receipt Date: 20121102
  Transmission Date: 20130627
  Serious: Yes (Other)
  Sender: FDA-Public Use
  Company Number: None

PATIENT
  Age: 61 Year
  Sex: Female
  Weight: 97.98 kg

DRUGS (1)
  1. ERIVEDGE [Suspect]
     Indication: BASAL CELL CARCINOMA
     Route: 048
     Dates: start: 20120503, end: 20120928

REACTIONS (8)
  - Muscle contracture [None]
  - Eating disorder [None]
  - Dysphagia [None]
  - Constipation [None]
  - Nausea [None]
  - Alopecia [None]
  - Muscle spasms [None]
  - Pain [None]
